FAERS Safety Report 5657174-4 (Version None)
Quarter: 2008Q1

REPORT INFORMATION
  Report Type: 
  Country: None (occurrence: None)
  Receive Date: 20080306
  Receipt Date: 20080306
  Transmission Date: 20080703
  Serious: Yes (Hospitalization)
  Sender: FDA-Public Use
  Company Number: None

PATIENT
  Age: 16 Year
  Sex: Female

DRUGS (4)
  1. MINOCYCLINE HCL [Suspect]
     Indication: ACNE
     Dosage: 100MG BID PO
     Route: 048
     Dates: start: 20071012, end: 20080109
  2. CLINDAMYCIN HCL [Concomitant]
  3. TRETINOIN [Concomitant]
  4. BENZOYL PEROXIDE [Concomitant]

REACTIONS (3)
  - BENIGN INTRACRANIAL HYPERTENSION [None]
  - HEADACHE [None]
  - VISUAL DISTURBANCE [None]
